FAERS Safety Report 17924619 (Version 3)
Quarter: 2021Q3

REPORT INFORMATION
  Report Type: Report from Study
  Country: GT (occurrence: GT)
  Receive Date: 20200622
  Receipt Date: 20210828
  Transmission Date: 20211014
  Serious: No
  Sender: FDA-Public Use
  Company Number: NVSC2020GT174316

PATIENT
  Age: 82 Year
  Sex: Female

DRUGS (4)
  1. EXFORGE [Suspect]
     Active Substance: AMLODIPINE BESYLATE\VALSARTAN
     Dosage: UNK, QD  ( 5 MG OF AMLODIPINE AND 160 MG OF VALSARTAN (4 OR 5 MONTHS AGO)
     Route: 065
  2. EXFORGE [Suspect]
     Active Substance: AMLODIPINE BESYLATE\VALSARTAN
     Indication: HYPERTENSION
     Dosage: QD ( 5 MG OF AMLODIPINE AND 160 MG OF VALSARTAN)
     Route: 065
     Dates: start: 201907
  3. EXFORGE [Suspect]
     Active Substance: AMLODIPINE BESYLATE\VALSARTAN
     Dosage: 0.5 DF, QD (10 MG OF AMLODIPINE AND 320 MG OF VALSARTAN)(2, 3, 4 OR 5 MONTHS AGO)
     Route: 065
  4. CORENTEL [Concomitant]
     Active Substance: BISOPROLOL FUMARATE
     Indication: PRODUCT USED FOR UNKNOWN INDICATION
     Dosage: 5 MG
     Route: 065

REACTIONS (1)
  - Wrong technique in product usage process [Unknown]
